APPROVED DRUG PRODUCT: SUPRAX
Active Ingredient: CEFIXIME
Strength: 500MG/5ML
Dosage Form/Route: FOR SUSPENSION;ORAL
Application: N202091 | Product #001 | TE Code: AB
Applicant: LUPIN LTD
Approved: Feb 20, 2013 | RLD: Yes | RS: Yes | Type: RX

PATENTS:
Patent 9233112 | Expires: Dec 14, 2028